FAERS Safety Report 23356606 (Version 1)
Quarter: 2023Q4

REPORT INFORMATION
  Report Type: Spontaneous
  Country: US (occurrence: None)
  Receive Date: 20231229
  Receipt Date: 20231229
  Transmission Date: 20240110
  Serious: No
  Sender: FDA-Public Use
  Company Number: None

PATIENT
  Age: 80 Year
  Sex: Male
  Weight: 80.74 kg

DRUGS (16)
  1. ABIRATERONE [Suspect]
     Active Substance: ABIRATERONE
     Indication: Prostate cancer
     Dosage: OTHER FREQUENCY : 4 TABS QAM;?
     Route: 048
     Dates: start: 20230313, end: 20231213
  2. ALLOPURINOL [Concomitant]
  3. ATORVASTATIN [Concomitant]
  4. LUNESTA [Concomitant]
     Active Substance: ESZOPICLONE
  5. FOLIC ACID [Concomitant]
     Active Substance: FOLIC ACID
  6. GLIPIZIDE [Concomitant]
     Active Substance: GLIPIZIDE
  7. LATANOPROST [Concomitant]
     Active Substance: LATANOPROST
  8. LEVOTHYROXINE [Concomitant]
     Active Substance: LEVOTHYROXINE
  9. METHOTREXATE [Concomitant]
     Active Substance: METHOTREXATE
  10. Medrol [Concomitant]
  11. MIDODRINE [Concomitant]
  12. TRAMADOL [Concomitant]
  13. CALCIUM [Concomitant]
  14. Vitamin D [Concomitant]
  15. LEUPROLIDE [Concomitant]
     Active Substance: LEUPROLIDE
  16. ZOLPIDEM [Concomitant]
     Active Substance: ZOLPIDEM TARTRATE

REACTIONS (1)
  - Blood glucose increased [None]

NARRATIVE: CASE EVENT DATE: 20231213
